FAERS Safety Report 24137554 (Version 2)
Quarter: 2024Q3

REPORT INFORMATION
  Report Type: Spontaneous
  Country: CN (occurrence: CN)
  Receive Date: 20240725
  Receipt Date: 20240729
  Transmission Date: 20241017
  Serious: Yes (Other)
  Sender: MERCK
  Company Number: CN-009507513-2407CHN012518

PATIENT
  Age: 68 Year
  Sex: Male
  Weight: 59.6 kg

DRUGS (6)
  1. KEYTRUDA [Suspect]
     Active Substance: PEMBROLIZUMAB
     Indication: Lung neoplasm malignant
     Dosage: 200 MG, ONCE ON DAY 2
     Route: 041
     Dates: start: 20240403, end: 20240403
  2. PEMETREXED DISODIUM [Suspect]
     Active Substance: PEMETREXED DISODIUM
     Indication: Lung neoplasm malignant
     Dosage: 0.8 G, ONCE ON DAY 1
     Route: 041
     Dates: start: 20240402, end: 20240402
  3. CISPLATIN [Suspect]
     Active Substance: CISPLATIN
     Indication: Lung neoplasm malignant
     Dosage: 45 MG, QD ON DAY 1-3
     Route: 041
     Dates: start: 20240402, end: 20240404
  4. SODIUM CHLORIDE [Concomitant]
     Active Substance: SODIUM CHLORIDE
     Dosage: 100 ML, ONCE; INDICATION: MEDICATION DILUTION
     Route: 041
     Dates: start: 20240402, end: 20240402
  5. SODIUM CHLORIDE [Concomitant]
     Active Substance: SODIUM CHLORIDE
     Dosage: 250 ML, QD ON DAY 1-3; INDICATION: MEDICATION DILUTION
     Route: 041
     Dates: start: 20240402, end: 20240404
  6. SODIUM CHLORIDE [Concomitant]
     Active Substance: SODIUM CHLORIDE
     Dosage: 100 ML, ONCE; INDICATION: MEDICATION DILUTION
     Route: 041
     Dates: start: 20240403, end: 20240403

REACTIONS (3)
  - White blood cell count decreased [Recovering/Resolving]
  - Neutrophil count decreased [Recovering/Resolving]
  - Product use issue [Unknown]

NARRATIVE: CASE EVENT DATE: 20240403
